FAERS Safety Report 6072064-3 (Version None)
Quarter: 2009Q1

REPORT INFORMATION
  Report Type: 
  Country: None (occurrence: None)
  Receive Date: 20090205
  Receipt Date: 20090205
  Transmission Date: 20090719
  Serious: No
  Sender: FDA-Public Use
  Company Number: None

PATIENT
  Age: 24 Year
  Sex: Female
  Weight: 83.0083 kg

DRUGS (1)
  1. NUVARING [Suspect]
     Indication: MENSTRUATION IRREGULAR
     Dosage: 1 RING FOR 3 WEEKS VAG 3 WEEKS IN, 1 WEEK OUT
     Route: 067

REACTIONS (3)
  - DEPRESSION [None]
  - HEADACHE [None]
  - SUICIDAL IDEATION [None]
